FAERS Safety Report 9203199 (Version 1)
Quarter: 2013Q2

REPORT INFORMATION
  Report Type: Spontaneous
  Country: US (occurrence: US)
  Receive Date: 20130402
  Receipt Date: 20130402
  Transmission Date: 20140414
  Serious: No
  Sender: FDA-Public Use
  Company Number: US-009507513-1303USA014145

PATIENT
  Sex: Male

DRUGS (1)
  1. NEXPLANON [Suspect]

REACTIONS (5)
  - Injury associated with device [Recovering/Resolving]
  - Application site pain [Recovering/Resolving]
  - Application site haemorrhage [Recovering/Resolving]
  - Accidental exposure to product [Unknown]
  - Product quality issue [Unknown]
